FAERS Safety Report 18661397 (Version 3)
Quarter: 2021Q1

REPORT INFORMATION
  Report Type: Report from Study
  Country: SE (occurrence: SE)
  Receive Date: 20201224
  Receipt Date: 20210308
  Transmission Date: 20210419
  Serious: Yes (Hospitalization)
  Sender: FDA-Public Use
  Company Number: SE-CELGENEUS-SWE-20201205104

PATIENT
  Age: 79 Year
  Sex: Male

DRUGS (11)
  1. FELODIPIN [Concomitant]
     Active Substance: FELODIPINE
     Indication: BLOOD PRESSURE MEASUREMENT
     Route: 065
     Dates: start: 2020
  2. INNOHEP [Concomitant]
     Active Substance: TINZAPARIN SODIUM
     Indication: THROMBOSIS PROPHYLAXIS
     Route: 065
     Dates: start: 20201215
  3. LIXIANA [Concomitant]
     Active Substance: EDOXABAN TOSYLATE
     Indication: ANTICOAGULANT THERAPY
     Route: 065
     Dates: start: 2020, end: 20201214
  4. VENETOCLAX. [Suspect]
     Active Substance: VENETOCLAX
     Indication: MANTLE CELL LYMPHOMA
     Route: 065
     Dates: start: 20201208, end: 20201210
  5. RITUXIMAB. [Suspect]
     Active Substance: RITUXIMAB
     Indication: MANTLE CELL LYMPHOMA
     Route: 065
     Dates: start: 20201208, end: 20201214
  6. ATORVASTATIN [Concomitant]
     Active Substance: ATORVASTATIN
     Indication: BLOOD PRESSURE MEASUREMENT
     Route: 065
     Dates: start: 2020
  7. CALCIPOS FORTE [Concomitant]
     Indication: PROPHYLAXIS
     Route: 065
     Dates: start: 2020
  8. LENALIDOMIDE [Suspect]
     Active Substance: LENALIDOMIDE
     Indication: MANTLE CELL LYMPHOMA
     Dosage: 15 MILLIGRAM
     Route: 048
     Dates: start: 20201208, end: 20201215
  9. VENETOCLAX. [Suspect]
     Active Substance: VENETOCLAX
     Route: 065
     Dates: start: 20201211, end: 20201213
  10. VENETOCLAX. [Suspect]
     Active Substance: VENETOCLAX
     Route: 065
     Dates: start: 20201214
  11. RAMIPRIL. [Concomitant]
     Active Substance: RAMIPRIL
     Indication: BLOOD PRESSURE MEASUREMENT
     Route: 065
     Dates: start: 2020

REACTIONS (1)
  - Lymphostasis [Recovered/Resolved]
